FAERS Safety Report 8850063 (Version 2)
Quarter: 2012Q4

REPORT INFORMATION
  Report Type: 
  Country: FR (occurrence: FR)
  Receive Date: 20121019
  Receipt Date: 20121116
  Transmission Date: 20130627
  Serious: Yes (Death, Hospitalization)
  Sender: FDA-Public Use
  Company Number: FR-ARROW-2012-17633

PATIENT
  Age: 69 Year
  Sex: Female

DRUGS (5)
  1. ALPRAZOLAM (UNKNOWN) [Suspect]
     Indication: PSYCHOTIC DISORDER
     Dosage: 60 Tablet, single
     Route: 048
  2. EFFEXOR [Suspect]
     Indication: PSYCHOTIC DISORDER
     Dosage: 30 Tablet, single
     Route: 048
  3. TERALITHE [Suspect]
     Indication: PSYCHOTIC DISORDER
     Dosage: 60 Tablet, single
     Route: 048
  4. TERCIAN [Suspect]
     Indication: PRODUCT USED FOR UNKNOWN INDICATION
     Dosage: 60 Tablet, single
     Route: 048
  5. GLUCOVANCE [Suspect]
     Indication: PRODUCT USED FOR UNKNOWN INDICATION
     Dosage: 60 Tablet, single
     Route: 048

REACTIONS (12)
  - Intentional overdose [Fatal]
  - Toxicity to various agents [Fatal]
  - Multi-organ failure [Fatal]
  - Disseminated intravascular coagulation [Fatal]
  - Renal failure acute [Fatal]
  - Hypoxia [Fatal]
  - Lactic acidosis [Fatal]
  - Shock [Fatal]
  - Coma [Fatal]
  - Hypotension [Fatal]
  - Hypothermia [Fatal]
  - Bradycardia [Fatal]
